FAERS Safety Report 6478498-7 (Version None)
Quarter: 2009Q4

REPORT INFORMATION
  Report Type: 
  Country: None (occurrence: None)
  Receive Date: 20091207
  Receipt Date: 20091123
  Transmission Date: 20100525
  Serious: Yes (Other)
  Sender: FDA-Public Use
  Company Number: ES-MYLANLABS-2009S1020169

PATIENT
  Age: 14 Year
  Sex: Male

DRUGS (4)
  1. METHOTREXATE [Suspect]
     Indication: PRECURSOR T-LYMPHOBLASTIC LYMPHOMA/LEUKAEMIA STAGE III
     Dosage: 5 G/M2 IN INFUSION FOR 24 H (THIRD CYCLE)
  2. GLUTAMINE /00503401/ [Interacting]
     Indication: MUCOSAL INFLAMMATION
     Dosage: 5G/8H
     Route: 048
  3. ONDANSETRON [Concomitant]
  4. FLUCONAZOLE [Concomitant]
     Indication: CANDIDIASIS

REACTIONS (3)
  - DRUG INTERACTION [None]
  - FACE OEDEMA [None]
  - RENAL FAILURE ACUTE [None]
